FAERS Safety Report 7797468-X (Version None)
Quarter: 2011Q4

REPORT INFORMATION
  Report Type: 
  Country: None (occurrence: None)
  Receive Date: 20111003
  Receipt Date: 20110922
  Transmission Date: 20120403
  Serious: Yes (Other)
  Sender: FDA-Public Use
  Company Number: 2011AP002155

PATIENT
  Sex: Male

DRUGS (8)
  1. AMITRIPTYLINE HCL [Suspect]
     Dosage: 20 MG;QD;PO
     Route: 048
  2. ONDANSETRON [Concomitant]
  3. OMEPRAZOLE [Suspect]
     Dosage: 20 MG;QD;PO
     Route: 048
  4. QUININE SULFATE [Concomitant]
  5. PREDNISOLONE [Concomitant]
  6. DOMPERIDONE [Concomitant]
  7. ACETAMINOPHEN [Concomitant]
  8. MIRTAZAPINE [Suspect]
     Dosage: 15 MG;QD;PO
     Route: 048

REACTIONS (2)
  - BLOOD SODIUM DECREASED [None]
  - URINE SODIUM DECREASED [None]
